FAERS Safety Report 4791187-X (Version None)
Quarter: 2005Q4

REPORT INFORMATION
  Report Type: 
  Country: None (occurrence: None)
  Receive Date: 20051005
  Receipt Date: 20050914
  Transmission Date: 20060501
  Serious: Yes (Hospitalization)
  Sender: FDA-Public Use
  Company Number: 2005RR-00766

PATIENT
  Age: 90 Year
  Sex: Female

DRUGS (5)
  1. ASPIRIN [Suspect]
     Indication: ANGIOPATHY
     Dosage: 75 MG, QD, ORAL
     Route: 048
     Dates: start: 20030801, end: 20050816
  2. FRUSEMIDE TABLET BP (FUROSEMIDE) [Concomitant]
  3. LACTULOSE [Concomitant]
  4. TERBUTALINE [Concomitant]
  5. BECLOMETHASONE DIPROPIONATE [Concomitant]

REACTIONS (4)
  - DUODENAL ULCER [None]
  - GASTRITIS [None]
  - HAEMATEMESIS [None]
  - HELICOBACTER PYLORI IDENTIFICATION TEST POSITIVE [None]
